FAERS Safety Report 7063776-3 (Version None)
Quarter: 2010Q4

REPORT INFORMATION
  Report Type: 
  Country: None (occurrence: None)
  Receive Date: 20101026
  Receipt Date: 20101007
  Transmission Date: 20110411
  Serious: No
  Sender: FDA-Public Use
  Company Number: US-ABBOTT-10P-163-0667374-00

PATIENT
  Sex: Female

DRUGS (1)
  1. LUPRON [Suspect]
     Indication: PRODUCT USED FOR UNKNOWN INDICATION

REACTIONS (7)
  - ANXIETY [None]
  - DIZZINESS [None]
  - HOT FLUSH [None]
  - INCREASED APPETITE [None]
  - MOOD ALTERED [None]
  - NAUSEA [None]
  - NIGHT SWEATS [None]
